FAERS Safety Report 8472269-8 (Version None)
Quarter: 2012Q2

REPORT INFORMATION
  Report Type: 
  Country: None (occurrence: None)
  Receive Date: 20120627
  Receipt Date: 20120626
  Transmission Date: 20120825
  Serious: Yes (Death)
  Sender: FDA-Public Use
  Company Number: JP-BRACCO-005932

PATIENT
  Age: 60 Year
  Sex: Male
  Weight: 70 kg

DRUGS (2)
  1. IOPAMIDOL-370 [Suspect]
     Indication: COMPUTERISED TOMOGRAM ABDOMEN
     Route: 042
     Dates: start: 20120528, end: 20120528
  2. IOPAMIDOL-370 [Suspect]
     Indication: RENAL CANCER
     Route: 042
     Dates: start: 20120528, end: 20120528

REACTIONS (1)
  - ANAPHYLACTIC REACTION [None]
